FAERS Safety Report 10230809 (Version 2)
Quarter: 2014Q3

REPORT INFORMATION
  Report Type: Spontaneous
  Country: IT (occurrence: IT)
  Receive Date: 20140611
  Receipt Date: 20140815
  Transmission Date: 20150326
  Serious: Yes (Other)
  Sender: FDA-Public Use
  Company Number: IT-ACTAVIS-2014-12123

PATIENT
  Age: 64 Year
  Sex: Female
  Weight: 90 kg

DRUGS (1)
  1. PACLITAXEL (UNKNOWN) [Suspect]
     Active Substance: PACLITAXEL
     Indication: OVARIAN CANCER RECURRENT
     Dosage: 175 MG/SM/CYCLIC
     Route: 042
     Dates: start: 20140519, end: 20140519

REACTIONS (3)
  - Bronchospasm [Recovered/Resolved]
  - Back pain [Recovered/Resolved]
  - Erythema [Recovered/Resolved]

NARRATIVE: CASE EVENT DATE: 20140519
